FAERS Safety Report 14100363 (Version 2)
Quarter: 2017Q4

REPORT INFORMATION
  Report Type: Report from Study
  Country: None (occurrence: UA)
  Receive Date: 20171017
  Receipt Date: 20171026
  Transmission Date: 20180321
  Serious: Yes (Hospitalization)
  Sender: FDA-Public Use
  Company Number: UA-ABBVIE-17P-269-2125593-00

PATIENT
  Age: 64 Year
  Sex: Female
  Weight: 93 kg

DRUGS (12)
  1. DIALIPON [Concomitant]
     Indication: TOXIC NEUROPATHY
     Route: 042
     Dates: start: 20170703
  2. OMEPRAZOLUM [Concomitant]
     Indication: GASTRODUODENAL ULCER
     Route: 048
     Dates: start: 20170601
  3. ALLOPURINOLUM [Concomitant]
     Indication: PROPHYLAXIS
  4. DEXAMETHASONE. [Suspect]
     Active Substance: DEXAMETHASONE
     Indication: PLASMA CELL MYELOMA
     Dosage: DAY 1,2,4,5,8,9,11 AND 12 OF EACH 21 DAY CYCLE
     Route: 048
     Dates: start: 20170601, end: 20171006
  5. LIPRAZIDUM [Concomitant]
     Route: 042
     Dates: start: 20171009
  6. MILGAMMA [Concomitant]
     Active Substance: VITAMIN B
     Indication: TOXIC NEUROPATHY
     Route: 048
     Dates: start: 20170703
  7. OMEPRAZOLUM [Concomitant]
     Indication: PROPHYLAXIS
  8. ALLOPURINOLUM [Concomitant]
     Indication: TUMOUR LYSIS SYNDROME
     Route: 048
     Dates: start: 20170601
  9. PLACEBO [Suspect]
     Active Substance: UNSPECIFIED INGREDIENT
     Indication: PLASMA CELL MYELOMA
     Route: 048
     Dates: start: 20170601, end: 20171008
  10. BORTEZOMIB [Suspect]
     Active Substance: BORTEZOMIB
     Indication: PLASMA CELL MYELOMA
     Dosage: DAYS, 1,4, 8 AND 11 OF EACH 21 DAY CYCLE
     Route: 058
     Dates: start: 20170601, end: 20170921
  11. ASPIRIN CARDIO [Concomitant]
     Active Substance: ASPIRIN
     Indication: THROMBOSIS PROPHYLAXIS
     Route: 048
     Dates: start: 20170601
  12. LIPRAZIDUM [Concomitant]
     Indication: HYPERTENSION
     Dosage: IN THE MORNING
     Route: 048
     Dates: start: 20170601

REACTIONS (1)
  - Cytotoxic cardiomyopathy [Recovered/Resolved]

NARRATIVE: CASE EVENT DATE: 20171009
